FAERS Safety Report 13447057 (Version 3)
Quarter: 2017Q3

REPORT INFORMATION
  Report Type: Spontaneous
  Country: US (occurrence: US)
  Receive Date: 20170417
  Receipt Date: 20170721
  Transmission Date: 20171127
  Serious: No
  Sender: FDA-Public Use
  Company Number: US-PFIZER INC-2017161573

PATIENT
  Age: 42 Year
  Sex: Female
  Weight: 59.87 kg

DRUGS (4)
  1. VENLAFAXINE [Concomitant]
     Active Substance: VENLAFAXINE HYDROCHLORIDE
     Indication: DEPRESSION
     Dosage: 225 MG, UNK
  2. LYRICA [Suspect]
     Active Substance: PREGABALIN
     Dosage: 75 MG, 2X/DAY
     Route: 048
     Dates: start: 20170329
  3. LYRICA [Suspect]
     Active Substance: PREGABALIN
     Indication: FIBROMYALGIA
     Dosage: UNK
  4. LANSOPRAZOLE. [Concomitant]
     Active Substance: LANSOPRAZOLE
     Indication: GASTRITIS
     Dosage: 30 MG, 1X/DAY
     Route: 048

REACTIONS (12)
  - Feeling abnormal [Unknown]
  - Condition aggravated [Unknown]
  - Pain [Recovering/Resolving]
  - Hypoaesthesia [Unknown]
  - Sedation [Not Recovered/Not Resolved]
  - Somnolence [Unknown]
  - Thinking abnormal [Unknown]
  - Discomfort [Not Recovered/Not Resolved]
  - Movement disorder [Unknown]
  - Fatigue [Unknown]
  - Headache [Unknown]
  - Insomnia [Unknown]

NARRATIVE: CASE EVENT DATE: 20170331
